FAERS Safety Report 20888334 (Version 1)
Quarter: 2022Q2

REPORT INFORMATION
  Report Type: Spontaneous
  Country: US (occurrence: US)
  Receive Date: 20220529
  Receipt Date: 20220529
  Transmission Date: 20220721
  Serious: No
  Sender: FDA-Public Use
  Company Number: US-JNJFOC-20220546102

PATIENT
  Sex: Male

DRUGS (1)
  1. RISPERDAL [Suspect]
     Active Substance: RISPERIDONE
     Indication: Psychotic disorder
     Route: 048
     Dates: end: 201106

REACTIONS (3)
  - Somnolence [Unknown]
  - Coordination abnormal [Unknown]
  - Joint stiffness [Unknown]

NARRATIVE: CASE EVENT DATE: 20110101
